FAERS Safety Report 5022561-4 (Version None)
Quarter: 2006Q2

REPORT INFORMATION
  Report Type: 
  Country: None (occurrence: None)
  Receive Date: 20060605
  Receipt Date: 20060526
  Transmission Date: 20061013
  Serious: Yes (Other)
  Sender: FDA-Public Use
  Company Number: 2006-05-1415

PATIENT
  Age: 69 Year
  Sex: Male

DRUGS (1)
  1. INTRON A [Suspect]
     Indication: MALIGNANT MELANOMA
     Dosage: INTRAVENOUS
     Route: 042
     Dates: start: 20050329, end: 20060501

REACTIONS (1)
  - CARDIAC DISORDER [None]
